FAERS Safety Report 4503593-9 (Version None)
Quarter: 2004Q4

REPORT INFORMATION
  Report Type: 
  Country: None (occurrence: None)
  Receive Date: 20041112
  Receipt Date: 20041026
  Transmission Date: 20050328
  Serious: Yes (Hospitalization)
  Sender: FDA-Public Use
  Company Number: DSA_70509_2004

PATIENT
  Age: 30 Year
  Sex: Female

DRUGS (9)
  1. AZATHIOPRINE [Suspect]
     Indication: MYALGIA
     Dosage: 100 MG QDAY
  2. AZATHIOPRINE [Suspect]
     Indication: SYSTEMIC LUPUS ERYTHEMATOSUS
     Dosage: 100 MG QDAY
  3. AZATHIOPRINE [Suspect]
     Indication: VASCULITIC RASH
     Dosage: 100 MG QDAY
  4. CELECOXIB [Suspect]
     Indication: MYALGIA
     Dosage: 200 MG QDAY
  5. CELECOXIB [Suspect]
     Indication: SYSTEMIC LUPUS ERYTHEMATOSUS
     Dosage: 200 MG QDAY
  6. CELECOXIB [Suspect]
     Indication: VASCULITIC RASH
     Dosage: 200 MG QDAY
  7. HYDROXYCHLOROQUINE [Concomitant]
  8. PREDNISONE [Concomitant]
  9. FOSINOPRIL SODIUM [Concomitant]

REACTIONS (11)
  - ABNORMAL CLOTTING FACTOR [None]
  - ASTHENIA [None]
  - BLOOD ALBUMIN DECREASED [None]
  - COMA [None]
  - HEPATIC ENCEPHALOPATHY [None]
  - HEPATIC FAILURE [None]
  - INTERNATIONAL NORMALISED RATIO INCREASED [None]
  - MALAISE [None]
  - NAUSEA [None]
  - RENAL FAILURE [None]
  - VOMITING [None]
